FAERS Safety Report 10960521 (Version 1)
Quarter: 2015Q1

REPORT INFORMATION
  Report Type: Spontaneous
  Country: US (occurrence: None)
  Receive Date: 20150326
  Receipt Date: 20150326
  Transmission Date: 20150721
  Serious: Yes (Hospitalization)
  Sender: FDA-Public Use
  Company Number: None

PATIENT
  Sex: Male
  Weight: 79.4 kg

DRUGS (11)
  1. CYCLOAPERINE [Concomitant]
  2. LASIX [Concomitant]
     Active Substance: FUROSEMIDE
  3. PAROXETINE [Concomitant]
     Active Substance: PAROXETINE\PAROXETINE HYDROCHLORIDE
  4. FOLIC ACID. [Concomitant]
     Active Substance: FOLIC ACID
  5. AMLODIPINE [Concomitant]
     Active Substance: AMLODIPINE BESYLATE
  6. RIBAVIRIN 1000 MG [Suspect]
     Active Substance: RIBAVIRIN
     Indication: HEPATITIS C
     Dosage: 600 Q AM?400 Q PM
     Dates: start: 20140430, end: 20141015
  7. ATENOLOL. [Concomitant]
     Active Substance: ATENOLOL
  8. LANTUS [Concomitant]
     Active Substance: INSULIN GLARGINE
  9. SOFOSBUVIR 400 MG  GILEAD [Suspect]
     Active Substance: SOFOSBUVIR
     Indication: HEPATITIS C
     Route: 048
     Dates: start: 20140430, end: 20141015
  10. CLONIDINE. [Concomitant]
     Active Substance: CLONIDINE
  11. DOXAZOSIN [Concomitant]
     Active Substance: DOXAZOSIN\DOXAZOSIN MESYLATE

REACTIONS (1)
  - Pneumonia [None]

NARRATIVE: CASE EVENT DATE: 20140730
